FAERS Safety Report 17015722 (Version 1)
Quarter: 2019Q4

REPORT INFORMATION
  Report Type: Report from Study
  Country: JP (occurrence: JP)
  Receive Date: 20191111
  Receipt Date: 20191111
  Transmission Date: 20200122
  Serious: Yes (Other)
  Sender: FDA-Public Use
  Company Number: JP-TEVA-2019-JP-1067553

PATIENT
  Age: 54 Year
  Sex: Female
  Weight: 55 kg

DRUGS (11)
  1. ROZEREM [Concomitant]
     Active Substance: RAMELTEON
  2. GASTER [Concomitant]
     Active Substance: FAMOTIDINE
  3. METHYCOBAL [Concomitant]
     Active Substance: METHYLCOBALAMIN
  4. BENZALIN [Concomitant]
     Dates: start: 20180423
  5. PREDONINE [Suspect]
     Active Substance: PREDNISOLONE
     Indication: RELAPSING-REMITTING MULTIPLE SCLEROSIS
     Route: 048
  6. PREDONINE [Suspect]
     Active Substance: PREDNISOLONE
     Route: 048
     Dates: start: 20180422
  7. BONALON [Concomitant]
     Active Substance: ALENDRONATE SODIUM
  8. LOXONIN [Concomitant]
     Active Substance: LOXOPROFEN SODIUM
  9. GLATIRAMER ACETATE INJECTION 20MG [Suspect]
     Active Substance: GLATIRAMER ACETATE
     Indication: RELAPSING-REMITTING MULTIPLE SCLEROSIS
     Route: 065
     Dates: start: 20180118
  10. SOLU-MEDROL [Concomitant]
     Active Substance: METHYLPREDNISOLONE SODIUM SUCCINATE
     Dates: start: 20180419, end: 20180505
  11. ALOSENN [Concomitant]

REACTIONS (3)
  - Diverticulitis [Recovered/Resolved]
  - Injection site erythema [Unknown]
  - Injection site swelling [Unknown]

NARRATIVE: CASE EVENT DATE: 20181101
